FAERS Safety Report 17941367 (Version 2)
Quarter: 2020Q2

REPORT INFORMATION
  Report Type: Spontaneous
  Country: IT (occurrence: IT)
  Receive Date: 20200624
  Receipt Date: 20200626
  Transmission Date: 20200714
  Serious: Yes (Hospitalization, Other)
  Sender: FDA-Public Use
  Company Number: NVSC2020IT173246

PATIENT
  Age: 87 Year
  Sex: Female

DRUGS (4)
  1. APIXABAN [Suspect]
     Active Substance: APIXABAN
     Indication: CEREBROVASCULAR ACCIDENT PROPHYLAXIS
     Dosage: 15 MG (CUMULATIVE DOSE TO FIRST REACTION)
     Route: 048
     Dates: start: 20200408
  2. ELIQUIS [Suspect]
     Active Substance: APIXABAN
     Indication: INTENTIONAL SELF-INJURY
     Dosage: 15 MILLIGRAM (CUMULATIVE DOSE TO FIRST REACTION)
     Route: 048
     Dates: start: 20200408, end: 20200408
  3. SIMVASTATIN. [Suspect]
     Active Substance: SIMVASTATIN
     Indication: INTENTIONAL SELF-INJURY
     Dosage: UNK
     Route: 048
     Dates: start: 20200408, end: 20200408
  4. LORAZEPAM. [Suspect]
     Active Substance: LORAZEPAM
     Indication: INTENTIONAL SELF-INJURY
     Dosage: 100 MG, ONCE/SINGLE (TOTAL)
     Route: 048
     Dates: start: 20200408, end: 20200408

REACTIONS (3)
  - Palpitations [Unknown]
  - Drug abuse [Unknown]
  - Intentional self-injury [Unknown]

NARRATIVE: CASE EVENT DATE: 20200408
